FAERS Safety Report 9074524 (Version 1)
Quarter: 2013Q1

REPORT INFORMATION
  Report Type: Report from Study
  Country: US (occurrence: US)
  Receive Date: 20130129
  Receipt Date: 20130129
  Transmission Date: 20140127
  Serious: No
  Sender: FDA-Public Use
  Company Number: US-ABBOTT-12P-163-0924339-00

PATIENT
  Age: 53 Year
  Sex: Female

DRUGS (7)
  1. HUMIRA 40 MG/0.8 ML PEN [Suspect]
     Indication: CROHN^S DISEASE
     Dosage: LOADING DOSE
     Dates: start: 20120407
  2. ASACOL HD [Concomitant]
     Indication: CROHN^S DISEASE
     Dosage: 800 MG X 4 TABS DAILY
  3. 6-MP [Concomitant]
     Indication: CROHN^S DISEASE
     Dosage: 50 MG X 1 1/2 TABS DAILY
  4. PREDNISONE [Concomitant]
     Indication: URTICARIA
  5. PERCOCET [Concomitant]
     Indication: PAIN
     Dosage: 5/325MG 1 TO 1 1/2 TABS DAILY AS REQUIRED
  6. XANAX [Concomitant]
     Indication: MENOPAUSAL SYMPTOMS
  7. XANAX [Concomitant]
     Indication: INSOMNIA

REACTIONS (5)
  - Oropharyngeal pain [Recovering/Resolving]
  - Paranasal sinus hypersecretion [Recovering/Resolving]
  - Cough [Recovering/Resolving]
  - Cough [Recovering/Resolving]
  - Pulmonary congestion [Recovering/Resolving]
